FAERS Safety Report 20501603 (Version 1)
Quarter: 2022Q1

REPORT INFORMATION
  Report Type: Report from Study
  Country: US (occurrence: US)
  Receive Date: 20220222
  Receipt Date: 20220222
  Transmission Date: 20220423
  Serious: No
  Sender: FDA-Public Use
  Company Number: US-NOVARTISTESTPH-NVSC2022US038936

PATIENT
  Sex: Female

DRUGS (2)
  1. XIIDRA [Suspect]
     Active Substance: LIFITEGRAST
     Indication: Dry eye
     Dosage: UNK
     Route: 065
     Dates: start: 2020
  2. XIIDRA [Suspect]
     Active Substance: LIFITEGRAST
     Dosage: 1 DOSAGE FORM, BID
     Route: 047

REACTIONS (2)
  - Dry eye [Unknown]
  - Eye pruritus [Unknown]
